FAERS Safety Report 8478572 (Version 3)
Quarter: 2012Q4

REPORT INFORMATION
  Report Type: 
  Country: US (occurrence: US)
  Receive Date: 20120327
  Receipt Date: 20120912
  Transmission Date: 20130627
  Serious: Yes (Death)
  Sender: FDA-Public Use
  Company Number: US-ROCHE-1052726

PATIENT
  Age: 80 None
  Sex: Female

DRUGS (8)
  1. LUCENTIS [Suspect]
     Indication: DIABETIC RETINAL OEDEMA
     Route: 050
     Dates: start: 20100628
  2. AMIODARONE [Concomitant]
  3. FUROSEMIDE [Concomitant]
  4. DIOVAN [Concomitant]
  5. MAG OXIDE [Concomitant]
  6. LEVOTHYROXINE [Concomitant]
  7. NIFEDICAL [Concomitant]
  8. NITRENDIPINE [Concomitant]

REACTIONS (1)
  - Death [Fatal]
